FAERS Safety Report 11779555 (Version 1)
Quarter: 2015Q4

REPORT INFORMATION
  Report Type: Spontaneous
  Country: CZ (occurrence: CZ)
  Receive Date: 20151125
  Receipt Date: 20151125
  Transmission Date: 20160304
  Serious: Yes (Other)
  Sender: FDA-Public Use
  Company Number: CZ-TEVA-611793ISR

PATIENT
  Age: 2 Year
  Sex: Female

DRUGS (2)
  1. TOPOTECAN [Suspect]
     Active Substance: TOPOTECAN\TOPOTECAN HYDROCHLORIDE
     Indication: RETINOBLASTOMA
     Dosage: 2ND ADMINISTRATION TO LEFT ARTERIA OPHTHALMICA
     Route: 013
  2. CARBOPLATIN. [Suspect]
     Active Substance: CARBOPLATIN
     Indication: RETINOBLASTOMA
     Dosage: 2ND ADMINISTRATION TO LEFT ARTERIA OPHTHALMICA
     Route: 013

REACTIONS (1)
  - Transient ischaemic attack [Recovered/Resolved]
